FAERS Safety Report 7564988-2 (Version None)
Quarter: 2011Q2

REPORT INFORMATION
  Report Type: 
  Country: None (occurrence: None)
  Receive Date: 20110622
  Receipt Date: 20110331
  Transmission Date: 20111010
  Serious: Yes (Other)
  Sender: FDA-Public Use
  Company Number: US-MYLANLABS-2011S1005704

PATIENT
  Age: 14 Year
  Sex: Male

DRUGS (4)
  1. DEPAKOTE ER [Concomitant]
     Route: 048
  2. LITHIUM [Concomitant]
     Route: 048
  3. CLOZAPINE [Suspect]
     Indication: BIPOLAR DISORDER
     Route: 048
     Dates: start: 20110208, end: 20110324
  4. ZOLOFT [Concomitant]
     Route: 048

REACTIONS (2)
  - LEUKOPENIA [None]
  - GRANULOCYTOPENIA [None]
